FAERS Safety Report 4993423-3 (Version None)
Quarter: 2006Q2

REPORT INFORMATION
  Report Type: 
  Country: None (occurrence: None)
  Receive Date: 20060505
  Receipt Date: 20051116
  Transmission Date: 20061013
  Serious: Yes (Life-Threatening, Hospitalization)
  Sender: FDA-Public Use
  Company Number: NO-BRISTOL-MYERS SQUIBB COMPANY-13196803

PATIENT
  Age: 72 Year
  Sex: Male

DRUGS (3)
  1. GLUCOPHAGE [Suspect]
     Indication: DIABETES MELLITUS
     Route: 048
     Dates: end: 20050928
  2. AMARYL [Concomitant]
     Route: 048
  3. ZYPREXA [Concomitant]
     Indication: SCHIZOPHRENIA

REACTIONS (4)
  - COMA [None]
  - DIARRHOEA [None]
  - LACTIC ACIDOSIS [None]
  - VOMITING [None]
